FAERS Safety Report 10223048 (Version 1)
Quarter: 2014Q2

REPORT INFORMATION
  Report Type: Spontaneous
  Country: ES (occurrence: ES)
  Receive Date: 20140607
  Receipt Date: 20140607
  Transmission Date: 20141212
  Serious: Yes (Death, Other)
  Sender: FDA-Public Use
  Company Number: PHHY2014ES068348

PATIENT
  Age: 66 Year
  Sex: Male

DRUGS (4)
  1. ONBREZ [Suspect]
     Indication: DYSPNOEA
     Dosage: UNK UKN, QD
     Route: 055
     Dates: start: 201405
  2. BISOPROLOL [Interacting]
     Indication: MYOCARDIAL INFARCTION
     Dosage: UNK UKN, UNK
  3. RAMIPRIL [Concomitant]
     Indication: HYPERTENSION
     Dosage: UNK UKN, UNK
  4. ACETYLSALICYLIC ACID [Concomitant]
     Indication: MYOCARDIAL INFARCTION
     Dosage: UNK UKN, UNK

REACTIONS (4)
  - Cardiac arrest [Fatal]
  - Feeling abnormal [Fatal]
  - Chest pain [Fatal]
  - Drug interaction [Unknown]
